FAERS Safety Report 23357505 (Version 1)
Quarter: 2023Q4

REPORT INFORMATION
  Report Type: Spontaneous
  Country: US (occurrence: None)
  Receive Date: 20231231
  Receipt Date: 20231231
  Transmission Date: 20240109
  Serious: Yes (Hospitalization, Disabling)
  Sender: FDA-Public Use
  Company Number: None

PATIENT
  Age: 30 Year
  Sex: Male
  Weight: 101.25 kg

DRUGS (1)
  1. LEVOFLOXACIN [Suspect]
     Active Substance: LEVOFLOXACIN
     Indication: Sinusitis
     Dosage: FREQUENCY : DAILY;?
     Route: 048
     Dates: start: 20231003, end: 20231006

REACTIONS (4)
  - Headache [None]
  - Sleep apnoea syndrome [None]
  - Skin burning sensation [None]
  - Depression [None]

NARRATIVE: CASE EVENT DATE: 20231008
